FAERS Safety Report 4289537-6 (Version None)
Quarter: 2004Q1

REPORT INFORMATION
  Report Type: 
  Country: None (occurrence: None)
  Receive Date: 20040126
  Receipt Date: 20030925
  Transmission Date: 20041129
  Serious: No
  Sender: FDA-Public Use
  Company Number: USA030948367

PATIENT
  Sex: Female

DRUGS (4)
  1. FORTEO [Suspect]
     Indication: OSTEOPOROSIS
     Dates: start: 20030902
  2. DARVOCET-N 100 [Concomitant]
  3. NEXIUM [Concomitant]
  4. DIAMOX [Concomitant]

REACTIONS (2)
  - BONE PAIN [None]
  - PELVIC PAIN [None]
